FAERS Safety Report 22587758 (Version 7)
Quarter: 2024Q2

REPORT INFORMATION
  Report Type: Spontaneous
  Country: PT (occurrence: PT)
  Receive Date: 20230612
  Receipt Date: 20240527
  Transmission Date: 20240716
  Serious: Yes (Death, Life-Threatening, Hospitalization, Disabling, Other)
  Sender: FDA-Public Use
  Company Number: PT-AUROBINDO-AUR-APL-2023-041566

PATIENT
  Age: 58 Year
  Sex: Male

DRUGS (11)
  1. BROMOCRIPTINE [Suspect]
     Active Substance: BROMOCRIPTINE
     Indication: Depression
     Dosage: UNK
     Route: 065
  2. BROMOCRIPTINE [Suspect]
     Active Substance: BROMOCRIPTINE
     Indication: Neuroleptic malignant syndrome
  3. DIAZEPAM [Suspect]
     Active Substance: DIAZEPAM
     Indication: Depression
     Dosage: UNK
     Route: 065
  4. DIAZEPAM [Suspect]
     Active Substance: DIAZEPAM
     Indication: Neuroleptic malignant syndrome
  5. OLANZAPINE [Suspect]
     Active Substance: OLANZAPINE
     Indication: Pneumonia bacterial
     Dosage: 20 MILLIGRAM, ONCE A DAY
     Route: 065
  6. OLANZAPINE [Suspect]
     Active Substance: OLANZAPINE
     Indication: Depression
  7. SERTRALINE [Suspect]
     Active Substance: SERTRALINE HYDROCHLORIDE
     Indication: Pneumonia bacterial
     Dosage: 100 MILLIGRAM, ONCE A DAY
     Route: 065
  8. SERTRALINE [Suspect]
     Active Substance: SERTRALINE HYDROCHLORIDE
     Indication: Depression
  9. CLONAZEPAM [Suspect]
     Active Substance: CLONAZEPAM
     Indication: Pneumonia bacterial
     Dosage: 1.5 MILLIGRAM, ONCE A DAY
     Route: 065
  10. CLONAZEPAM [Suspect]
     Active Substance: CLONAZEPAM
     Indication: Depression
  11. BUTYLSCOPOLAMINE [Concomitant]
     Active Substance: BUTYLSCOPOLAMINE
     Indication: Product used for unknown indication
     Dosage: UNK
     Route: 065

REACTIONS (18)
  - Neuroleptic malignant syndrome [Fatal]
  - Salivary hypersecretion [Fatal]
  - Altered state of consciousness [Fatal]
  - Hyperthermia [Fatal]
  - Tachycardia [Fatal]
  - Dysphagia [Fatal]
  - Hyperhidrosis [Fatal]
  - Hyperventilation [Fatal]
  - Death [Fatal]
  - Drug ineffective [Fatal]
  - Respiratory disorder [Unknown]
  - Respiration abnormal [Recovered/Resolved]
  - Tremor [Recovered/Resolved]
  - Leukocytosis [Recovered/Resolved]
  - Reflexes abnormal [Recovered/Resolved]
  - Muscle spasticity [Recovered/Resolved]
  - Drug ineffective for unapproved indication [Unknown]
  - Off label use [Unknown]
